FAERS Safety Report 5523091-3 (Version None)
Quarter: 2007Q4

REPORT INFORMATION
  Report Type: 
  Country: None (occurrence: None)
  Receive Date: 20071119
  Receipt Date: 20071105
  Transmission Date: 20080405
  Serious: Yes (Life-Threatening, Hospitalization)
  Sender: FDA-Public Use
  Company Number: 2007EN000275

PATIENT
  Age: 43 Year
  Sex: Female
  Weight: 90.7194 kg

DRUGS (23)
  1. OPANA ER [Suspect]
     Indication: PAIN
     Dosage: 40 MG;BID;PO
     Route: 048
     Dates: start: 20061201
  2. OPANA [Suspect]
     Indication: PAIN
     Dosage: PRN;PO
     Route: 048
     Dates: start: 20061201
  3. ABILIFY [Concomitant]
  4. ADVAIR DISKUS 100/50 [Concomitant]
  5. ALBUTEROL [Concomitant]
  6. VITAMIN B-12 [Concomitant]
  7. FERROUS SULFATE TAB [Concomitant]
  8. CENTRUM [Concomitant]
  9. FLOMAX [Concomitant]
  10. FRAGMIN [Concomitant]
  11. LAMICTAL [Concomitant]
  12. LIDODERM [Concomitant]
  13. OXYCODONE HCL [Concomitant]
  14. PHENERGAN HCL [Concomitant]
  15. PYRIDIUM [Concomitant]
  16. MACRODANTIN [Concomitant]
  17. REQUIP [Concomitant]
  18. ROBITUSSIN WITH CODEINE [Concomitant]
  19. STOOL SOFTENER [Concomitant]
  20. TEGRETOL [Concomitant]
  21. TRAZODONE HCL [Concomitant]
  22. VISTARIL [Concomitant]
  23. WARFARIN SODIUM [Concomitant]

REACTIONS (2)
  - ILEUS PARALYTIC [None]
  - INTESTINAL PERFORATION [None]
